FAERS Safety Report 12142638 (Version 10)
Quarter: 2016Q4

REPORT INFORMATION
  Report Type: Spontaneous
  Country: BG (occurrence: BG)
  Receive Date: 20160303
  Receipt Date: 20161125
  Transmission Date: 20170207
  Serious: Yes (Hospitalization)
  Sender: FDA-Public Use
  Company Number: BG-TAKEDA-2016MPI001498

PATIENT
  Age: 69 Year
  Sex: Female
  Weight: 61 kg

DRUGS (30)
  1. VELCADE [Suspect]
     Active Substance: BORTEZOMIB
     Dosage: 2.08 MG, UNK
     Route: 058
     Dates: start: 20150731
  2. VELCADE [Suspect]
     Active Substance: BORTEZOMIB
     Dosage: 2.08 MG, UNK
     Route: 058
     Dates: start: 20150911
  3. PREDNISONE. [Suspect]
     Active Substance: PREDNISONE
     Dosage: 100 MG, UNK
     Route: 048
     Dates: start: 20150905, end: 20150907
  4. PREDNISONE. [Suspect]
     Active Substance: PREDNISONE
     Dosage: 100 MG, UNK
     Route: 048
     Dates: start: 20151017, end: 20151019
  5. MELPHALAN [Suspect]
     Active Substance: MELPHALAN
     Dosage: 14 MG, UNK
     Route: 048
     Dates: start: 20151016, end: 20151019
  6. DARATUMUMAB [Suspect]
     Active Substance: DARATUMUMAB
     Indication: PLASMA CELL MYELOMA
     Dosage: 976 MG, 1/WEEK
     Route: 042
     Dates: start: 20150724
  7. BISEPTOL [Concomitant]
     Active Substance: SULFAMETHOXAZOLE\TRIMETHOPRIM
     Indication: PROPHYLAXIS
     Dosage: 960 MG, 2/WEEK
     Route: 048
     Dates: start: 20150729, end: 20150826
  8. VELCADE [Suspect]
     Active Substance: BORTEZOMIB
     Dosage: 2.08 MG, UNK
     Route: 058
     Dates: start: 20150814
  9. VELCADE [Suspect]
     Active Substance: BORTEZOMIB
     Dosage: 2.08 MG, UNK
     Route: 058
     Dates: start: 20150817
  10. PREDNISONE. [Suspect]
     Active Substance: PREDNISONE
     Indication: PLASMA CELL MYELOMA
     Dosage: 100 MG, UNK
     Route: 048
     Dates: start: 20150724, end: 20150727
  11. TEVAGRASTIM [Concomitant]
     Active Substance: FILGRASTIM
     Indication: NEUTROPENIA
     Dosage: 300 ?G, QD
     Route: 058
     Dates: start: 20150818, end: 20150826
  12. VELCADE [Suspect]
     Active Substance: BORTEZOMIB
     Dosage: 2.08 MG, UNK
     Route: 058
     Dates: start: 20150821
  13. VELCADE [Suspect]
     Active Substance: BORTEZOMIB
     Dosage: 2.08 MG, UNK
     Route: 058
     Dates: start: 20150824
  14. VELCADE [Suspect]
     Active Substance: BORTEZOMIB
     Dosage: 2.08 MG, UNK
     Route: 058
     Dates: start: 20150904
  15. MELPHALAN [Suspect]
     Active Substance: MELPHALAN
     Indication: PLASMA CELL MYELOMA
     Dosage: 14 MG, UNK
     Route: 048
     Dates: start: 20150724, end: 20150727
  16. MAXIPIM [Concomitant]
     Indication: NEUTROPENIA
     Dosage: 1000 MG, BID
     Route: 042
     Dates: start: 20150818, end: 20150824
  17. ACYCLOVIR                          /00587301/ [Concomitant]
     Active Substance: ACYCLOVIR
     Indication: PROPHYLAXIS
     Dosage: 400 MG, BID
     Route: 048
     Dates: start: 20150729, end: 20150826
  18. VELCADE [Suspect]
     Active Substance: BORTEZOMIB
     Dosage: 2.08 MG, UNK
     Route: 058
     Dates: start: 20151016
  19. MELPHALAN [Suspect]
     Active Substance: MELPHALAN
     Dosage: 14 MG, UNK
     Route: 048
     Dates: start: 20150904, end: 20150907
  20. MELPHALAN [Suspect]
     Active Substance: MELPHALAN
     Dosage: 16 MG, UNK
     Route: 048
     Dates: start: 20150726, end: 20150727
  21. HUMAN ALBUMIN [Concomitant]
     Active Substance: ALBUMIN HUMAN
     Indication: HYPOALBUMINAEMIA
     Dosage: 100 MG, QD
     Route: 042
     Dates: start: 20150818, end: 20150820
  22. VELCADE [Suspect]
     Active Substance: BORTEZOMIB
     Dosage: 2.08 MG, UNK
     Route: 058
     Dates: start: 20150925
  23. VELCADE [Suspect]
     Active Substance: BORTEZOMIB
     Dosage: 2.08 MG, UNK
     Route: 058
     Dates: start: 20151002
  24. VELCADE [Suspect]
     Active Substance: BORTEZOMIB
     Dosage: 2.08 MG, UNK
     Route: 058
     Dates: start: 20151023
  25. MERONEM [Concomitant]
     Active Substance: MEROPENEM
     Indication: NEUTROPENIA
     Dosage: 2000 MG, TID
     Route: 042
     Dates: start: 20150825, end: 20150828
  26. VELCADE [Suspect]
     Active Substance: BORTEZOMIB
     Indication: PLASMA CELL MYELOMA
     Dosage: 2.08 MG, 2/WEEK
     Route: 058
     Dates: start: 20150724
  27. VELCADE [Suspect]
     Active Substance: BORTEZOMIB
     Dosage: 2.08 MG, UNK
     Route: 058
     Dates: start: 20150727
  28. VELCADE [Suspect]
     Active Substance: BORTEZOMIB
     Dosage: 2.08 MG, UNK
     Route: 058
     Dates: start: 20150803
  29. DARATUMUMAB [Suspect]
     Active Substance: DARATUMUMAB
     Dosage: 976 MG, UNK
     Route: 042
     Dates: start: 20150814
  30. VORICONAZOLE. [Concomitant]
     Active Substance: VORICONAZOLE
     Indication: NEUTROPENIA
     Dosage: 200 MG, BID
     Route: 042
     Dates: start: 20150818, end: 20150824

REACTIONS (5)
  - Thrombocytopenia [Recovered/Resolved]
  - Anaemia [Recovered/Resolved]
  - Hypoalbuminaemia [Unknown]
  - Pleural effusion [Unknown]
  - Neutropenia [Unknown]

NARRATIVE: CASE EVENT DATE: 20150807
